FAERS Safety Report 8091710-6 (Version None)
Quarter: 2012Q1

REPORT INFORMATION
  Report Type: 
  Country: None (occurrence: None)
  Receive Date: 20120131
  Receipt Date: 20120126
  Transmission Date: 20120608
  Serious: Yes (Death)
  Sender: FDA-Public Use
  Company Number: US-CELGENEUS-163-21880-12012725

PATIENT
  Sex: Female

DRUGS (20)
  1. ALLOPURINOL [Concomitant]
     Route: 065
  2. NYSTATIN [Concomitant]
     Route: 065
  3. OMEPRAZOLE [Concomitant]
     Route: 065
  4. ASCORBIC ACID [Concomitant]
     Route: 065
  5. EFFEXOR [Concomitant]
     Route: 065
  6. SENOKOT [Concomitant]
     Route: 065
  7. MORPHINE [Concomitant]
     Route: 065
  8. LACTULOSE [Concomitant]
     Route: 065
  9. NITROSTAT [Concomitant]
     Route: 065
  10. POTASSIUM [Concomitant]
     Route: 065
  11. PROMETHAZINE [Concomitant]
     Route: 065
  12. REVLIMID [Suspect]
     Dosage: 5 MILLIGRAM
     Route: 048
     Dates: start: 20090901
  13. REVLIMID [Suspect]
     Dosage: 10 MILLIGRAM
     Route: 048
     Dates: start: 20091001
  14. REVLIMID [Suspect]
     Dosage: 15 MILLIGRAM
     Route: 048
     Dates: start: 20091130
  15. FENTANYL [Concomitant]
     Route: 065
  16. FLEXERIL [Concomitant]
     Route: 065
  17. TIKOSYN [Concomitant]
     Route: 065
  18. VITAMIN E [Concomitant]
     Route: 065
  19. ARIMIDEX [Concomitant]
     Route: 065
  20. CARAFATE [Concomitant]
     Route: 065

REACTIONS (1)
  - DEATH [None]
